FAERS Safety Report 18381863 (Version 1)
Quarter: 2020Q4

REPORT INFORMATION
  Report Type: Spontaneous
  Country: US (occurrence: US)
  Receive Date: 20201014
  Receipt Date: 20201014
  Transmission Date: 20210114
  Serious: No
  Sender: FDA-Public Use
  Company Number: US-PFIZER INC-2020394493

PATIENT
  Age: 74 Year
  Sex: Male
  Weight: 95.24 kg

DRUGS (1)
  1. VYNDAQEL [Suspect]
     Active Substance: TAFAMIDIS MEGLUMINE
     Indication: AMYLOIDOSIS
     Dosage: 80 MG, DAILY (80 MG DAILY- 4-20 MG CAPSULES TAKEN DAILY)
     Dates: start: 2019, end: 20201009

REACTIONS (3)
  - Weight increased [Recovering/Resolving]
  - Off label use [Unknown]
  - Product use in unapproved indication [Unknown]

NARRATIVE: CASE EVENT DATE: 202007
